FAERS Safety Report 6656085-5 (Version None)
Quarter: 2010Q1

REPORT INFORMATION
  Report Type: 
  Country: None (occurrence: None)
  Receive Date: 20100329
  Receipt Date: 20100329
  Transmission Date: 20100710
  Serious: Yes (Other)
  Sender: FDA-Public Use
  Company Number: B0590492A

PATIENT
  Sex: Female

DRUGS (2)
  1. PAROXETINE HYDROCHLORIDE [Suspect]
     Indication: DRUG USE FOR UNKNOWN INDICATION
     Dates: start: 19991101
  2. CLOMIPRAMINE HCL [Concomitant]

REACTIONS (6)
  - DRUG WITHDRAWAL SYNDROME [None]
  - DYSKINESIA [None]
  - MENTAL DISORDER [None]
  - PANIC ATTACK [None]
  - SUICIDAL IDEATION [None]
  - THOUGHT INSERTION [None]
